FAERS Safety Report 7534736-0 (Version None)
Quarter: 2011Q2

REPORT INFORMATION
  Report Type: 
  Country: None (occurrence: None)
  Receive Date: 20110609
  Receipt Date: 20110502
  Transmission Date: 20111010
  Serious: Yes (Hospitalization, Other)
  Sender: FDA-Public Use
  Company Number: PHHY2011US41756

PATIENT
  Age: 59 Year
  Sex: Female
  Weight: 62.585 kg

DRUGS (1)
  1. RECLAST [Suspect]
     Dosage: 5 MG
     Route: 042

REACTIONS (7)
  - EYE SWELLING [None]
  - MYOCARDITIS [None]
  - CHEST PAIN [None]
  - PALPITATIONS [None]
  - HYPERSENSITIVITY [None]
  - PYREXIA [None]
  - HYPERTENSION [None]
